FAERS Safety Report 11948481 (Version 2)
Quarter: 2016Q1

REPORT INFORMATION
  Report Type: Spontaneous
  Country: GB (occurrence: GB)
  Receive Date: 20160125
  Receipt Date: 20160219
  Transmission Date: 20160526
  Serious: Yes (Hospitalization)
  Sender: FDA-Public Use
  Company Number: GB-AUROBINDO-AUR-APL-2016-00300

PATIENT
  Age: 27 Year
  Sex: Female

DRUGS (1)
  1. CLARITHROMYCIN 500MG [Suspect]
     Active Substance: CLARITHROMYCIN
     Indication: INFLUENZA LIKE ILLNESS
     Dosage: 500 MG, ONCE A DAY
     Route: 065

REACTIONS (5)
  - Vision blurred [Recovered/Resolved]
  - Tunnel vision [Recovered/Resolved]
  - Benign intracranial hypertension [Recovered/Resolved]
  - Papilloedema [Recovered/Resolved]
  - Headache [Recovered/Resolved]
